FAERS Safety Report 23548937 (Version 1)
Quarter: 2024Q1

REPORT INFORMATION
  Report Type: Spontaneous
  Country: US (occurrence: US)
  Receive Date: 20240221
  Receipt Date: 20240221
  Transmission Date: 20240409
  Serious: No
  Sender: FDA-Public Use
  Company Number: US-TEVA-VS-3156986

PATIENT
  Age: 37 Year
  Sex: Female

DRUGS (2)
  1. TIAGABINE HYDROCHLORIDE [Suspect]
     Active Substance: TIAGABINE HYDROCHLORIDE
     Indication: Perinatal stroke
     Route: 065
  2. GABITRIL [Suspect]
     Active Substance: TIAGABINE HYDROCHLORIDE
     Indication: Perinatal stroke
     Route: 065

REACTIONS (3)
  - Reaction to excipient [Unknown]
  - Wrong technique in product usage process [Unknown]
  - Product use in unapproved indication [Unknown]
